FAERS Safety Report 7057214-4 (Version None)
Quarter: 2010Q4

REPORT INFORMATION
  Report Type: 
  Country: None (occurrence: None)
  Receive Date: 20101022
  Receipt Date: 20100902
  Transmission Date: 20110411
  Serious: No
  Sender: FDA-Public Use
  Company Number: US-BAYER-201020940BCC

PATIENT
  Age: 79 Year
  Sex: Female
  Weight: 45 kg

DRUGS (4)
  1. ALEVE [Suspect]
     Indication: PAIN IN JAW
     Dosage: TOTAL DAILY DOSE: 220 MG  UNIT DOSE: 220 MG
     Route: 048
     Dates: start: 20100901
  2. EXELON [Concomitant]
     Route: 061
  3. CARBIDOPA AND LEVODOPA [Concomitant]
  4. TYLENOL (CAPLET) [Concomitant]

REACTIONS (1)
  - THROAT IRRITATION [None]
